FAERS Safety Report 15130796 (Version 1)
Quarter: 2018Q3

REPORT INFORMATION
  Report Type: Other
  Country: ES (occurrence: ES)
  Receive Date: 20180711
  Receipt Date: 20180711
  Transmission Date: 20181010
  Serious: Yes (Death, Hospitalization, Other)
  Sender: FDA-Public Use
  Company Number: ES-ASPEN-GLO2018ES006688

PATIENT
  Age: 21 Year

DRUGS (2)
  1. BUSULFAN. [Suspect]
     Active Substance: BUSULFAN
     Indication: PRODUCT USED FOR UNKNOWN INDICATION
     Dosage: 3.2 MG/KG
     Route: 042
  2. FLUDARABINA [Suspect]
     Active Substance: FLUDARABINE PHOSPHATE
     Indication: PRODUCT USED FOR UNKNOWN INDICATION
     Dosage: 40 MG/M2
     Route: 042

REACTIONS (4)
  - Acute kidney injury [Fatal]
  - Shock haemorrhagic [Recovered/Resolved]
  - Cystitis haemorrhagic [Fatal]
  - Urinary tract obstruction [Fatal]

NARRATIVE: CASE EVENT DATE: 20170210
